FAERS Safety Report 5359677-9 (Version None)
Quarter: 2007Q2

REPORT INFORMATION
  Report Type: 
  Country: None (occurrence: None)
  Receive Date: 20070615
  Receipt Date: 20070612
  Transmission Date: 20071010
  Serious: Yes (Death)
  Sender: FDA-Public Use
  Company Number: US-ABBOTT-07P-163-0371339-00

PATIENT
  Age: 57 Year
  Sex: Female

DRUGS (1)
  1. TARKA [Suspect]
     Indication: HYPERTENSION
     Dosage: 2 MG/240 MG, 4 TABLETS
     Route: 048

REACTIONS (1)
  - DRUG TOXICITY [None]
